FAERS Safety Report 4326279-2 (Version None)
Quarter: 2004Q1

REPORT INFORMATION
  Report Type: 
  Country: None (occurrence: None)
  Receive Date: 20040324
  Receipt Date: 20040311
  Transmission Date: 20041129
  Serious: Yes (Death)
  Sender: FDA-Public Use
  Company Number: 2003-110714-NL

PATIENT
  Age: 63 Year

DRUGS (3)
  1. DANAPAROID SODIUM [Suspect]
     Indication: DISSEMINATED INTRAVASCULAR COAGULATION
     Dosage: 2500 ANTI-XA INTRAVENOUS DRIP
     Route: 041
     Dates: start: 20030711, end: 20030724
  2. GABEXATE MESILATE [Concomitant]
  3. PREDNISOLONE [Concomitant]

REACTIONS (11)
  - ALANINE AMINOTRANSFERASE DECREASED [None]
  - ASPARTATE AMINOTRANSFERASE DECREASED [None]
  - BLOOD CREATININE INCREASED [None]
  - BLOOD LACTATE DEHYDROGENASE DECREASED [None]
  - BLOOD UREA INCREASED [None]
  - CONDITION AGGRAVATED [None]
  - DRUG EFFECT DECREASED [None]
  - MULTIPLE MYELOMA [None]
  - PULMONARY OEDEMA [None]
  - RENAL DISORDER [None]
  - WHITE BLOOD CELL COUNT INCREASED [None]
